FAERS Safety Report 11822432 (Version 1)
Quarter: 2015Q4

REPORT INFORMATION
  Report Type: Spontaneous
  Country: IL (occurrence: IL)
  Receive Date: 20151210
  Receipt Date: 20151210
  Transmission Date: 20160305
  Serious: Yes (Hospitalization)
  Sender: FDA-Public Use
  Company Number: IL-NOVOPROD-472776

PATIENT
  Age: 72 Year
  Sex: Female

DRUGS (1)
  1. LEVEMIR [Suspect]
     Active Substance: INSULIN DETEMIR
     Indication: DIABETES MELLITUS
     Dosage: UNK
     Route: 058
     Dates: start: 20141101

REACTIONS (3)
  - Blood glucose increased [Unknown]
  - Traumatic haemorrhage [Unknown]
  - Vascular occlusion [Unknown]

NARRATIVE: CASE EVENT DATE: 2015
